FAERS Safety Report 14893584 (Version 2)
Quarter: 2018Q3

REPORT INFORMATION
  Report Type: Spontaneous
  Country: CA (occurrence: CA)
  Receive Date: 20180514
  Receipt Date: 20180807
  Transmission Date: 20181010
  Serious: Yes (Other)
  Sender: FDA-Public Use
  Company Number: CA-SHIRE-CA201817955

PATIENT

DRUGS (3)
  1. INTUNIV [Suspect]
     Active Substance: GUANFACINE HYDROCHLORIDE
     Indication: TIC
     Dosage: 1 MG, 1X/DAY:QD
     Route: 048
     Dates: start: 20171106
  2. INTUNIV [Suspect]
     Active Substance: GUANFACINE HYDROCHLORIDE
     Indication: ANXIETY
  3. INTUNIV [Suspect]
     Active Substance: GUANFACINE HYDROCHLORIDE
     Indication: AGGRESSION

REACTIONS (2)
  - Intentional self-injury [Unknown]
  - Head banging [Unknown]

NARRATIVE: CASE EVENT DATE: 20171112
